FAERS Safety Report 7015616-6 (Version None)
Quarter: 2010Q3

REPORT INFORMATION
  Report Type: 
  Country: None (occurrence: None)
  Receive Date: 20100927
  Receipt Date: 20100915
  Transmission Date: 20110219
  Serious: Yes (Hospitalization)
  Sender: FDA-Public Use
  Company Number: JP-MERCK-1009USA03647

PATIENT
  Age: 72 Year
  Sex: Female

DRUGS (3)
  1. COZAAR [Suspect]
     Dosage: DASAGE U DURING A DAY
     Route: 048
  2. LANSOPRAZOLE [Suspect]
     Dosage: DOSAGE U DURING A DAY
     Route: 065
  3. GASMOTIN [Suspect]
     Dosage: DOSAGE U DURING A DAY
     Route: 048

REACTIONS (3)
  - AGRANULOCYTOSIS [None]
  - NEPHRITIS [None]
  - RENAL IMPAIRMENT [None]
